FAERS Safety Report 18041436 (Version 1)
Quarter: 2020Q3

REPORT INFORMATION
  Report Type: Spontaneous
  Country: US (occurrence: US)
  Receive Date: 20200719
  Receipt Date: 20200719
  Transmission Date: 20201103
  Serious: Yes (Other)
  Sender: FDA-Public Use
  Company Number: US-BAUSCH-BL-2020-019820

PATIENT
  Age: 89 Year
  Sex: Female

DRUGS (4)
  1. MURO 128 [Suspect]
     Active Substance: SODIUM CHLORIDE
     Indication: CORNEAL DISORDER
     Dosage: STARTED 14 YEARS PRIOR TO INITIAL REPORT, TAKING IN MORNING AND EVENING IN EACH EYE
     Route: 047
     Dates: start: 2006
  2. ALBUTEROL. [Concomitant]
     Active Substance: ALBUTEROL
     Indication: PRODUCT USED FOR UNKNOWN INDICATION
     Route: 065
  3. THERATEARS [Concomitant]
     Active Substance: CARBOXYMETHYLCELLULOSE SODIUM
     Indication: PRODUCT USED FOR UNKNOWN INDICATION
     Route: 047
  4. SYSTANE (HYPROMELLOSE 2910 (4000 MPA.S)) [Concomitant]
     Active Substance: HYPROMELLOSE 2910 (4000 MPA.S)
     Indication: PRODUCT USED FOR UNKNOWN INDICATION
     Route: 047

REACTIONS (10)
  - Dysphagia [Unknown]
  - Dyspnoea [Not Recovered/Not Resolved]
  - Inflammation [Unknown]
  - Blindness unilateral [Not Recovered/Not Resolved]
  - Eye pain [Unknown]
  - Eye irritation [Not Recovered/Not Resolved]
  - Eye infection [Unknown]
  - Ocular hyperaemia [Not Recovered/Not Resolved]
  - Transplant failure [Unknown]
  - Swelling face [Unknown]

NARRATIVE: CASE EVENT DATE: 2018
